FAERS Safety Report 12919624 (Version 1)
Quarter: 2016Q4

REPORT INFORMATION
  Report Type: Spontaneous
  Country: GB (occurrence: GB)
  Receive Date: 20161108
  Receipt Date: 20161108
  Transmission Date: 20170207
  Serious: Yes (Other)
  Sender: FDA-Public Use
  Company Number: GB-AMGEN-GBRSP2016103846

PATIENT
  Age: 55 Year
  Sex: Female

DRUGS (1)
  1. ENBREL [Suspect]
     Active Substance: ETANERCEPT
     Indication: PRODUCT USED FOR UNKNOWN INDICATION
     Dosage: 50 MG, WEEKLY
     Route: 058

REACTIONS (10)
  - Liver disorder [Unknown]
  - Peripheral swelling [Unknown]
  - Protein urine [Unknown]
  - Nausea [Unknown]
  - Headache [Unknown]
  - Deep vein thrombosis [Unknown]
  - Fatigue [Unknown]
  - Sinus pain [Unknown]
  - Malaise [Unknown]
  - Hypertension [Unknown]
